FAERS Safety Report 23675953 (Version 2)
Quarter: 2024Q3

REPORT INFORMATION
  Report Type: Spontaneous
  Country: US (occurrence: US)
  Receive Date: 20240327
  Receipt Date: 20240723
  Transmission Date: 20241017
  Serious: Yes (Other)
  Sender: TEVA
  Company Number: US-TEVA-VS-3161256

PATIENT
  Age: 76 Year
  Sex: Female

DRUGS (1)
  1. BUDESONIDE [Suspect]
     Active Substance: BUDESONIDE
     Indication: Product used for unknown indication
     Route: 065

REACTIONS (9)
  - Loss of consciousness [Unknown]
  - Back pain [Unknown]
  - Feeling abnormal [Unknown]
  - Feeling abnormal [Unknown]
  - Arthralgia [Unknown]
  - Fatigue [Unknown]
  - Thinking abnormal [Unknown]
  - Product prescribing issue [Unknown]
  - Eye pain [Unknown]

NARRATIVE: CASE EVENT DATE: 20231101
